FAERS Safety Report 4398503-1 (Version None)
Quarter: 2004Q3

REPORT INFORMATION
  Report Type: 
  Country: None (occurrence: None)
  Receive Date: 20040712
  Receipt Date: 20040630
  Transmission Date: 20050211
  Serious: Yes (Death)
  Sender: FDA-Public Use
  Company Number: 2004-DE-03620GD

PATIENT

DRUGS (9)
  1. CYCLOPHOSPHAMIDE [Suspect]
     Indication: HAEMATOPOIETIC STEM CELL MOBILISATION
     Dosage: 4 G/ME2 (4 DIVIDED DOSES DURING 24 HOURS); 4 G/ME2, IV
  2. CYCLOPHOSPHAMIDE [Suspect]
     Indication: MULTIPLE MYELOMA
     Dosage: 4 G/ME2 (4 DIVIDED DOSES DURING 24 HOURS); 4 G/ME2, IV
  3. DEXAMETHASONE [Suspect]
     Indication: MULTIPLE MYELOMA
     Dosage: 96 MG (8 HOURLY), PO
     Route: 048
  4. VINCRISTINE [Suspect]
     Indication: MULTIPLE MYELOMA
     Dosage: 400 MCG, (CONTINUOUS INFUSION), IV
     Route: 042
  5. DOXORUBICIN HCL [Suspect]
     Indication: MULTIPLE MYELOMA
     Dosage: 9 MG/ME2 (CONTINUOUS INFUSION), IV
     Route: 042
  6. EPIRUBICIN [Suspect]
     Indication: HAEMATOPOIETIC STEM CELL MOBILISATION
     Dosage: 200 MG/ME2, IV
     Route: 042
  7. EPIRUBICIN [Suspect]
     Indication: MULTIPLE MYELOMA
     Dosage: 200 MG/ME2, IV
     Route: 042
  8. BUSULPHAN (BUSULFAN) [Suspect]
     Indication: MULTIPLE MYELOMA
     Dosage: 4 MG/KG (6 HOURLY), PO
     Route: 048
  9. MELPHALAN (MELPHALAN) [Suspect]
     Indication: MULTIPLE MYELOMA
     Dosage: 140 MG/ME2, IV
     Route: 042

REACTIONS (2)
  - MALIGNANT NEOPLASM PROGRESSION [None]
  - MULTIPLE MYELOMA [None]
